FAERS Safety Report 18730275 (Version 1)
Quarter: 2021Q1

REPORT INFORMATION
  Report Type: Spontaneous
  Country: US (occurrence: US)
  Receive Date: 20210112
  Receipt Date: 20210112
  Transmission Date: 20210419
  Serious: No
  Sender: FDA-Public Use
  Company Number: US-PFIZER INC-2021012176

PATIENT
  Sex: Female

DRUGS (2)
  1. NARDIL [Suspect]
     Active Substance: PHENELZINE SULFATE
     Dosage: 0.5 DF, 2X/DAY
  2. NARDIL [Suspect]
     Active Substance: PHENELZINE SULFATE
     Dosage: 1 DF, 3X/DAY

REACTIONS (1)
  - Hyperhidrosis [Not Recovered/Not Resolved]
